FAERS Safety Report 13583669 (Version 2)
Quarter: 2017Q2

REPORT INFORMATION
  Report Type: Spontaneous
  Country: BR (occurrence: BR)
  Receive Date: 20170526
  Receipt Date: 20170529
  Transmission Date: 20170830
  Serious: No
  Sender: FDA-Public Use
  Company Number: BR-009507513-1705BRA010690

PATIENT
  Age: 37 Year
  Sex: Female
  Weight: 120 kg

DRUGS (3)
  1. CERAZETTE [Suspect]
     Active Substance: DESOGESTREL
     Dosage: UNK
     Route: 048
     Dates: start: 20170508
  2. LOSARTAN POTASSIUM. [Concomitant]
     Active Substance: LOSARTAN POTASSIUM
     Indication: HYPERTENSION
     Dosage: 50 MG, QD
     Route: 048
     Dates: start: 2010
  3. CERAZETTE [Suspect]
     Active Substance: DESOGESTREL
     Dosage: UNK
     Route: 048
     Dates: start: 201601, end: 201607

REACTIONS (6)
  - Influenza [Recovered/Resolved]
  - Vaginal haemorrhage [Not Recovered/Not Resolved]
  - Weight increased [Unknown]
  - Breast feeding [Unknown]
  - Throat irritation [Recovered/Resolved]
  - Menstrual disorder [Unknown]

NARRATIVE: CASE EVENT DATE: 2016
